FAERS Safety Report 9254423 (Version 7)
Quarter: 2013Q4

REPORT INFORMATION
  Report Type: Spontaneous
  Country: CA (occurrence: MX)
  Receive Date: 20130425
  Receipt Date: 20131008
  Transmission Date: 20140711
  Serious: Yes (Other)
  Sender: FDA-Public Use
  Company Number: CA-SANOFI-AVENTIS-2013SA001182

PATIENT
  Age: 56 Year
  Sex: Male

DRUGS (7)
  1. SOLOSTAR [Suspect]
     Indication: DEVICE THERAPY
     Dates: end: 20130615
  2. SOLOSTAR [Suspect]
     Indication: DEVICE THERAPY
     Dates: end: 20130615
  3. SOLOSTAR [Suspect]
     Indication: DEVICE THERAPY
     Dates: end: 20130615
  4. LANTUS SOLOSTAR [Suspect]
     Indication: PRODUCT USED FOR UNKNOWN INDICATION
     Dosage: 40 UNITS IN THE MORNING AND 40 U AT NIGHT DOSE:40 UNIT(S)
     Route: 058
  5. LANTUS SOLOSTAR [Suspect]
     Indication: PRODUCT USED FOR UNKNOWN INDICATION
     Dosage: 40 UNITS IN THE MORNING AND 40 U AT NIGHT DOSE:40 UNIT(S)
     Route: 058
  6. LANTUS SOLOSTAR [Suspect]
     Indication: PRODUCT USED FOR UNKNOWN INDICATION
     Dosage: 40 UNITS IN THE MORNING AND 40 U AT NIGHT DOSE:40 UNIT(S)
     Route: 058
  7. HUMALOG [Concomitant]

REACTIONS (6)
  - Diabetic ketoacidosis [Recovered/Resolved]
  - Suicidal ideation [Unknown]
  - Blood glucose increased [Recovered/Resolved]
  - Vomiting [Recovered/Resolved]
  - Headache [Recovered/Resolved]
  - Asthenia [Recovered/Resolved]
